FAERS Safety Report 14847382 (Version 1)
Quarter: 2018Q2

REPORT INFORMATION
  Report Type: Other
  Country: GB (occurrence: GB)
  Receive Date: 20180504
  Receipt Date: 20180504
  Transmission Date: 20180711
  Serious: Yes (Hospitalization)
  Sender: FDA-Public Use
  Company Number: GB-ACTELION-A-CH2018-171419

PATIENT
  Age: 31 Year
  Sex: Female

DRUGS (3)
  1. SILDENAFIL. [Concomitant]
     Active Substance: SILDENAFIL
     Dosage: 50 MG, EVERY 8 HOURS
  2. BOSENTAN. [Suspect]
     Active Substance: BOSENTAN
     Indication: PULMONARY HYPERTENSION
     Dosage: 125 MG, Q12HRS
     Route: 048
  3. ILOPROST. [Concomitant]
     Active Substance: ILOPROST
     Dosage: EVERY 3 HOURS
     Route: 055

REACTIONS (9)
  - Sepsis [Recovered/Resolved]
  - Uterine leiomyoma [Unknown]
  - Hypotension [Recovered/Resolved]
  - Tachycardia [Recovered/Resolved]
  - Oxygen saturation decreased [Recovered/Resolved]
  - Acrochordon [Recovered/Resolved]
  - Pyrexia [Recovered/Resolved]
  - Polypectomy [Unknown]
  - Lymphadenopathy [Recovered/Resolved]
